FAERS Safety Report 4433736-7 (Version None)
Quarter: 2004Q3

REPORT INFORMATION
  Report Type: 
  Country: None (occurrence: None)
  Receive Date: 20040825
  Receipt Date: 20040811
  Transmission Date: 20050211
  Serious: No
  Sender: FDA-Public Use
  Company Number: USA040568462

PATIENT
  Age: 80 Year
  Sex: Female
  Weight: 59 kg

DRUGS (4)
  1. FORTEO [Suspect]
     Dates: start: 20031205
  2. LIPITOR [Concomitant]
  3. HALCION [Concomitant]
  4. HYPERTENSION PILL X 3 [Concomitant]

REACTIONS (4)
  - DIABETES MELLITUS [None]
  - HEPATIC ENZYME INCREASED [None]
  - NEUROPATHY [None]
  - PHARMACEUTICAL PRODUCT COMPLAINT [None]
